FAERS Safety Report 8959683 (Version 1)
Quarter: 2012Q4

REPORT INFORMATION
  Report Type: 
  Country: NL (occurrence: NL)
  Receive Date: 20121212
  Receipt Date: 20121212
  Transmission Date: 20130627
  Serious: Yes (Hospitalization)
  Sender: FDA-Public Use
  Company Number: PHHY2012NL113803

PATIENT
  Sex: Female

DRUGS (3)
  1. ZOMETA [Suspect]
     Indication: MULTIPLE MYELOMA
     Dosage: 4 mg, per 28 days
     Route: 042
     Dates: start: 20110722
  2. ZOMETA [Suspect]
     Dosage: 4 mg, per 28 days
     Route: 042
     Dates: start: 20121109
  3. ZOMETA [Suspect]
     Dosage: 4 mg, per 28 days
     Route: 042
     Dates: start: 20121207

REACTIONS (3)
  - Pneumonia [Unknown]
  - Cough [Recovering/Resolving]
  - Pyrexia [Recovered/Resolved]
